FAERS Safety Report 6850620-X (Version None)
Quarter: 2010Q3

REPORT INFORMATION
  Report Type: 
  Country: None (occurrence: None)
  Receive Date: 20100716
  Receipt Date: 20080611
  Transmission Date: 20110219
  Serious: No
  Sender: FDA-Public Use
  Company Number: US-PFIZER INC-2007087222

PATIENT
  Sex: Female
  Weight: 68.95 kg

DRUGS (2)
  1. CHANTIX [Suspect]
     Indication: SMOKING CESSATION THERAPY
     Route: 048
     Dates: start: 20070701, end: 20070901
  2. LEXAPRO [Concomitant]
     Indication: MULTIPLE SCLEROSIS

REACTIONS (3)
  - BACK PAIN [None]
  - DIZZINESS [None]
  - VERTIGO [None]
